FAERS Safety Report 9439738 (Version 1)
Quarter: 2013Q3

REPORT INFORMATION
  Report Type: Spontaneous
  Country: US (occurrence: None)
  Receive Date: 20130802
  Receipt Date: 20130802
  Transmission Date: 20140515
  Serious: No
  Sender: FDA-Public Use
  Company Number: None

PATIENT
  Age: 6 Year
  Sex: Female
  Weight: 28 kg

DRUGS (1)
  1. LAMOTRIGINE 200MG TABLETS (ZYDUS) [Suspect]
     Dosage: 200MG DAILY ORAL
     Route: 048

REACTIONS (3)
  - Abnormal behaviour [None]
  - Dizziness [None]
  - Drug intolerance [None]
